FAERS Safety Report 8470438-4 (Version None)
Quarter: 2012Q2

REPORT INFORMATION
  Report Type: 
  Country: None (occurrence: None)
  Receive Date: 20120627
  Receipt Date: 20120618
  Transmission Date: 20120825
  Serious: Yes (Hospitalization, Other)
  Sender: FDA-Public Use
  Company Number: US-US-EMD SERONO, INC.-7141909

PATIENT
  Sex: Female

DRUGS (1)
  1. REBIF [Suspect]
     Indication: MULTIPLE SCLEROSIS
     Route: 058
     Dates: start: 20110617

REACTIONS (18)
  - TIC [None]
  - DIVERTICULITIS [None]
  - NAUSEA [None]
  - MUSCLE ATROPHY [None]
  - COMA [None]
  - OVERDOSE [None]
  - MUSCLE SPASTICITY [None]
  - GASTROENTERITIS VIRAL [None]
  - HYPOAESTHESIA [None]
  - DYSURIA [None]
  - MULTIPLE SCLEROSIS RELAPSE [None]
  - VITAMIN D DEFICIENCY [None]
  - INFLUENZA LIKE ILLNESS [None]
  - NYSTAGMUS [None]
  - BAND SENSATION [None]
  - WEIGHT INCREASED [None]
  - CALCIUM DEFICIENCY [None]
  - PARAESTHESIA [None]
